FAERS Safety Report 19496963 (Version 1)
Quarter: 2021Q3

REPORT INFORMATION
  Report Type: Spontaneous
  Country: US (occurrence: US)
  Receive Date: 20210704
  Receipt Date: 20210704
  Transmission Date: 20211014
  Serious: Yes (Hospitalization)
  Sender: FDA-Public Use
  Company Number: None

PATIENT
  Age: 26 Year
  Sex: Male
  Weight: 81 kg

DRUGS (2)
  1. ARISTADA [Concomitant]
     Active Substance: ARIPIPRAZOLE LAUROXIL
  2. ARIPIPRAZOLE. [Suspect]
     Active Substance: ARIPIPRAZOLE

REACTIONS (1)
  - Musculoskeletal stiffness [None]

NARRATIVE: CASE EVENT DATE: 20190702
